FAERS Safety Report 18334862 (Version 1)
Quarter: 2020Q4

REPORT INFORMATION
  Report Type: Spontaneous
  Country: DE (occurrence: DE)
  Receive Date: 20201001
  Receipt Date: 20201001
  Transmission Date: 20210113
  Serious: Yes (Hospitalization)
  Sender: FDA-Public Use
  Company Number: DE-TEVA-2020-DE-1831932

PATIENT
  Age: 54 Year
  Sex: Female
  Weight: 70 kg

DRUGS (3)
  1. ZOPICLON [Concomitant]
     Active Substance: ZOPICLONE
     Dosage: .5 DOSAGE FORMS DAILY; 7.5 MG, 0-0-0-0.5
     Route: 048
  2. EPIRUBICIN [Suspect]
     Active Substance: EPIRUBICIN
     Dosage: NK MG, NK
     Route: 065
  3. PANTOPRAZOL [Concomitant]
     Active Substance: PANTOPRAZOLE SODIUM
     Dosage: 80 MILLIGRAM DAILY;  1-0-1-0
     Route: 048

REACTIONS (2)
  - Dyspepsia [Recovering/Resolving]
  - Haematemesis [Recovering/Resolving]
